FAERS Safety Report 20569835 (Version 4)
Quarter: 2022Q2

REPORT INFORMATION
  Report Type: Spontaneous
  Country: IT (occurrence: IT)
  Receive Date: 20220309
  Receipt Date: 20220601
  Transmission Date: 20220721
  Serious: Yes (Hospitalization, Other)
  Sender: FDA-Public Use
  Company Number: IT-BRUNO-20220043

PATIENT
  Age: 62 Year
  Sex: Male

DRUGS (12)
  1. OXYCODONE [Suspect]
     Active Substance: OXYCODONE
     Indication: Postoperative analgesia
     Dosage: 10 MILLIGRAM, EVERY OTHER DAY
     Route: 065
     Dates: start: 20210616
  2. OXYCODONE [Suspect]
     Active Substance: OXYCODONE
     Indication: Pain
     Dosage: 3 MILLIGRAM, 3 TIMES A DAY
     Route: 042
     Dates: start: 20210616
  3. OXYCODONE [Suspect]
     Active Substance: OXYCODONE
     Dosage: 9 MILLIGRAM
     Route: 051
     Dates: start: 20210616
  4. OXYCODONE [Suspect]
     Active Substance: OXYCODONE
     Indication: Postoperative analgesia
     Dosage: 20 MILLIGRAM, ONCE A DAY (10MG,BID )
     Route: 048
     Dates: start: 20210616
  5. OXYCODONE [Suspect]
     Active Substance: OXYCODONE
     Indication: Pain
  6. PACLITAXEL [Suspect]
     Active Substance: PACLITAXEL
     Indication: Chemotherapy
     Dosage: CYCLE
     Route: 065
     Dates: start: 20210216, end: 20210316
  7. PACLITAXEL [Suspect]
     Active Substance: PACLITAXEL
     Indication: Lung adenocarcinoma
  8. CARBOPLATIN [Suspect]
     Active Substance: CARBOPLATIN
     Indication: Chemotherapy
     Dosage: CYCLE
     Route: 065
     Dates: start: 20210216, end: 20210316
  9. CARBOPLATIN [Suspect]
     Active Substance: CARBOPLATIN
     Indication: Lung adenocarcinoma
  10. SUFENTANIL [Suspect]
     Active Substance: SUFENTANIL
     Indication: Postoperative analgesia
     Dosage: 1 ML/HR, (UG/ML, ML/H)
     Route: 051
     Dates: start: 20210611, end: 20210615
  11. TRAMADOL [Suspect]
     Active Substance: TRAMADOL
     Indication: Postoperative analgesia
     Dosage: 200 MILLIGRAM, ONCE A DAY
     Route: 051
     Dates: start: 20210611, end: 20210615
  12. ROPIVACAINE [Concomitant]
     Active Substance: ROPIVACAINE
     Indication: Postoperative analgesia
     Dosage: 0.125 MILLIGRAM PER MILLILETER
     Route: 051
     Dates: start: 20210611, end: 20210615

REACTIONS (6)
  - Constipation [Recovered/Resolved]
  - Loss of consciousness [Unknown]
  - Abdominal pain [Unknown]
  - Asthenia [Unknown]
  - Hypersensitivity [Unknown]
  - Chest pain [Unknown]

NARRATIVE: CASE EVENT DATE: 20210101
